FAERS Safety Report 14805273 (Version 1)
Quarter: 2018Q2

REPORT INFORMATION
  Report Type: Spontaneous
  Country: US (occurrence: US)
  Receive Date: 20180425
  Receipt Date: 20180425
  Transmission Date: 20180711
  Serious: Yes (Other)
  Sender: FDA-Public Use
  Company Number: US-BAYER-2018-043096

PATIENT
  Sex: Male
  Weight: 70 kg

DRUGS (2)
  1. METAMUCIL [GLUCOSE MONOHYDRATE,PLANTAGO OVATA HUSK] [Concomitant]
  2. MILK OF MAGNESIA CHERRY [Suspect]
     Active Substance: MAGNESIUM HYDROXIDE
     Dosage: UNK UNK, QD
     Route: 048

REACTIONS (4)
  - Incorrect drug administration duration [Unknown]
  - Product prescribing issue [Unknown]
  - Underdose [Unknown]
  - Drug dependence [Unknown]
